FAERS Safety Report 7868069-X (Version None)
Quarter: 2011Q4

REPORT INFORMATION
  Report Type: 
  Country: None (occurrence: None)
  Receive Date: 20111028
  Receipt Date: 20111027
  Transmission Date: 20120403
  Serious: Yes (Death)
  Sender: FDA-Public Use
  Company Number: PT-ABBOTT-11P-130-0835575-00

PATIENT
  Sex: Female
  Weight: 65 kg

DRUGS (6)
  1. HUMIRA [Suspect]
     Indication: PSORIASIS
     Route: 058
     Dates: start: 20100505, end: 20110611
  2. PRAVASTATIN [Concomitant]
     Indication: DYSLIPIDAEMIA
  3. METFORMIN AND SITAGLIPTIN [Concomitant]
     Indication: PRODUCT USED FOR UNKNOWN INDICATION
  4. RAMIPRIL + HYDROCHLOROTHIAZIDE [Concomitant]
     Indication: HYPERTENSION
  5. INSULIN [Concomitant]
     Indication: DIABETES MELLITUS
  6. ASPIRIN [Concomitant]
     Indication: PRODUCT USED FOR UNKNOWN INDICATION

REACTIONS (1)
  - SUDDEN DEATH [None]
